FAERS Safety Report 22384696 (Version 1)
Quarter: 2023Q2

REPORT INFORMATION
  Report Type: Spontaneous
  Country: US (occurrence: None)
  Receive Date: 20230526
  Receipt Date: 20230526
  Transmission Date: 20230722
  Serious: No
  Sender: FDA-Public Use
  Company Number: None

PATIENT
  Sex: Female

DRUGS (1)
  1. STELARA [Suspect]
     Active Substance: USTEKINUMAB
     Indication: Psoriasis
     Dosage: 45 MG EVERY 12 WEEKS SQ?
     Route: 058
     Dates: start: 20210928

REACTIONS (4)
  - Erythema [None]
  - Pruritus [None]
  - Skin burning sensation [None]
  - Therapy non-responder [None]
